FAERS Safety Report 5609752-6 (Version None)
Quarter: 2008Q1

REPORT INFORMATION
  Report Type: 
  Country: None (occurrence: None)
  Receive Date: 20080131
  Receipt Date: 20071030
  Transmission Date: 20080703
  Serious: No
  Sender: FDA-Public Use
  Company Number: US-BAYER-200713558BCC

PATIENT
  Sex: Female
  Weight: 59 kg

DRUGS (3)
  1. ALEVE [Suspect]
     Indication: BACK PAIN
     Dosage: AS USED: 220 MG  UNIT DOSE: 220 MG
     Route: 048
     Dates: end: 20071028
  2. FEMARA [Concomitant]
  3. XANAX [Concomitant]

REACTIONS (1)
  - OEDEMA PERIPHERAL [None]
